FAERS Safety Report 7674646-1 (Version None)
Quarter: 2011Q3

REPORT INFORMATION
  Report Type: 
  Country: None (occurrence: None)
  Receive Date: 20110810
  Receipt Date: 20110727
  Transmission Date: 20111222
  Serious: Yes (Other)
  Sender: FDA-Public Use
  Company Number: TN-ROCHE-790102

PATIENT
  Sex: Male
  Weight: 75 kg

DRUGS (6)
  1. TOCILIZUMAB [Suspect]
     Indication: RHEUMATOID ARTHRITIS
     Route: 042
     Dates: start: 20110501
  2. ACTONEL [Concomitant]
     Indication: OSTEOPOROSIS
     Dosage: DRUG NAME REPORTED AS ACTONEL 35
     Route: 048
     Dates: start: 20090101
  3. DAFLON [Concomitant]
     Dates: start: 20090101
  4. METHOTREXATE [Concomitant]
     Indication: RHEUMATOID ARTHRITIS
     Dosage: DOSE REPORTED AS 6 CP.
     Route: 048
     Dates: start: 20020101
  5. CORTISOL [Concomitant]
     Dosage: FREQUENCY: DAILY
  6. PLAQUENIL [Concomitant]
     Indication: RHEUMATOID ARTHRITIS

REACTIONS (1)
  - VASCULAR PURPURA [None]
